FAERS Safety Report 4823763-X (Version None)
Quarter: 2005Q4

REPORT INFORMATION
  Report Type: 
  Country: None (occurrence: None)
  Receive Date: 20051107
  Receipt Date: 20051025
  Transmission Date: 20060501
  Serious: Yes (Hospitalization)
  Sender: FDA-Public Use
  Company Number: 2005BI015941

PATIENT
  Age: 46 Year
  Sex: Female

DRUGS (11)
  1. AVONEX [Suspect]
     Indication: MULTIPLE SCLEROSIS
     Dosage: 30 UG; QW; IM
     Route: 030
     Dates: start: 20050506, end: 20050912
  2. SYNTHROID [Concomitant]
  3. AMARYL [Concomitant]
  4. IBUPROFEN [Concomitant]
  5. GLUCOPHAGE [Concomitant]
  6. FLEXERIL [Concomitant]
  7. TOPAMAX [Concomitant]
  8. ENALAPRIL [Concomitant]
  9. LORTAB [Concomitant]
  10. FERROUS SULFATE TAB [Concomitant]
  11. ELAVIL [Concomitant]

REACTIONS (4)
  - BLOOD GLUCOSE DECREASED [None]
  - BLOOD POTASSIUM DECREASED [None]
  - DEPRESSION [None]
  - SUICIDAL IDEATION [None]
